FAERS Safety Report 25685955 (Version 1)
Quarter: 2025Q3

REPORT INFORMATION
  Report Type: Spontaneous
  Country: US (occurrence: US)
  Receive Date: 20250815
  Receipt Date: 20250815
  Transmission Date: 20251021
  Serious: Yes (Other)
  Sender: NOVO NORDISK
  Company Number: US-NOVOPROD-1498205

PATIENT

DRUGS (2)
  1. OZEMPIC [Suspect]
     Active Substance: SEMAGLUTIDE
     Indication: Type 2 diabetes mellitus
     Dates: start: 201904, end: 202308
  2. TRULICITY [Suspect]
     Active Substance: DULAGLUTIDE
     Indication: Type 2 diabetes mellitus
     Dates: start: 201808, end: 201902

REACTIONS (3)
  - Gastrointestinal disorder [Not Recovered/Not Resolved]
  - Cholelithotomy [Not Recovered/Not Resolved]
  - Cholecystectomy [Not Recovered/Not Resolved]
